FAERS Safety Report 15729498 (Version 1)
Quarter: 2018Q4

REPORT INFORMATION
  Report Type: Spontaneous
  Country: US (occurrence: US)
  Receive Date: 20181217
  Receipt Date: 20181217
  Transmission Date: 20190205
  Serious: No
  Sender: FDA-Public Use
  Company Number: US-TARO-2017TAR01054

PATIENT
  Age: 68 Year
  Sex: Male
  Weight: 117.91 kg

DRUGS (4)
  1. FLUOROURACIL TOPICAL SOLUTION USP 5% [Suspect]
     Active Substance: FLUOROURACIL
     Dosage: 3 OR 4 DROPS, 2X/DAY ON HANDS
     Route: 061
     Dates: start: 2017
  2. FLUOROURACIL TOPICAL SOLUTION USP 5% [Suspect]
     Active Substance: FLUOROURACIL
     Indication: ACTINIC KERATOSIS
     Dosage: UNK, ON FACE
     Route: 061
  3. FLUOROURACIL TOPICAL SOLUTION USP 5% [Suspect]
     Active Substance: FLUOROURACIL
     Dosage: 2 G, UNK ON HANDS
     Route: 061
     Dates: start: 201711, end: 2017
  4. HYDROCHLOROTHIAZIDE. [Concomitant]
     Active Substance: HYDROCHLOROTHIAZIDE
     Dosage: UNK
     Dates: start: 2011

REACTIONS (7)
  - Application site pain [Not Recovered/Not Resolved]
  - Application site ulcer [Not Recovered/Not Resolved]
  - Expired product administered [Not Recovered/Not Resolved]
  - Application site erythema [Not Recovered/Not Resolved]
  - Application site vesicles [Not Recovered/Not Resolved]
  - Application site scab [Not Recovered/Not Resolved]
  - Application site haemorrhage [Not Recovered/Not Resolved]

NARRATIVE: CASE EVENT DATE: 201711
